FAERS Safety Report 6188042-X (Version None)
Quarter: 2009Q2

REPORT INFORMATION
  Report Type: 
  Country: None (occurrence: None)
  Receive Date: 20090513
  Receipt Date: 20090511
  Transmission Date: 20091009
  Serious: Yes (Death, Other)
  Sender: FDA-Public Use
  Company Number: PHEH2005US03231

PATIENT
  Sex: Male

DRUGS (23)
  1. ZOMETA [Suspect]
     Indication: PROSTATE CANCER METASTATIC
     Dosage: EVERY MONTH OVER 20 MINUTES
     Dates: start: 20021101, end: 20040916
  2. ZOMETA [Suspect]
     Dosage: 4 MG, Q3-4 WEEKS
     Route: 042
     Dates: start: 20020828, end: 20030807
  3. VITAMINS NOS [Concomitant]
  4. CHEMOTHERAPEUTICS,OTHER [Concomitant]
  5. PREDNISONE [Concomitant]
     Indication: NEOPLASM MALIGNANT
     Dosage: 5 MG, BID
     Dates: start: 20041021
  6. LIDOCAINE [Suspect]
     Indication: SURGERY
  7. CASODEX [Concomitant]
  8. FIBERCON [Concomitant]
     Dosage: UNK
  9. PERI-COLACE [Concomitant]
  10. VICODIN [Concomitant]
  11. DARVOCET-N 100 [Concomitant]
  12. TYLENOL [Concomitant]
  13. VALIUM [Concomitant]
  14. NIFEREX FORTE [Concomitant]
     Indication: MINERAL SUPPLEMENTATION
     Dosage: 150 UNK, BID
  15. ZINC OXIDE [Concomitant]
     Indication: ECZEMA
  16. DALMANE [Concomitant]
     Indication: SLEEP DISORDER
  17. INFED [Concomitant]
  18. AMBIEN [Concomitant]
     Indication: SLEEP DISORDER
  19. EPOGEN [Concomitant]
  20. LEXAPRO [Concomitant]
     Dosage: UNK
     Dates: end: 20050401
  21. ZOCOR [Concomitant]
     Dosage: UNK
     Dates: end: 20050201
  22. DURAGESIC-100 [Concomitant]
  23. PERCOCET [Concomitant]
     Indication: PAIN
     Dosage: EVERY 4-6 HRS

REACTIONS (78)
  - ABSCESS [None]
  - ABSCESS DRAINAGE [None]
  - ANAEMIA [None]
  - ANXIETY [None]
  - ATRIOVENTRICULAR BLOCK [None]
  - BACK PAIN [None]
  - BIOPSY [None]
  - BLADDER NECK OPERATION [None]
  - BLINDNESS [None]
  - BLOOD CHOLESTEROL INCREASED [None]
  - BLOOD GLUCOSE INCREASED [None]
  - BLOOD IRON DECREASED [None]
  - BONE DISORDER [None]
  - BRONCHITIS [None]
  - CACHEXIA [None]
  - CARDIAC MURMUR [None]
  - CARDIOMEGALY [None]
  - COMPUTERISED TOMOGRAM ABNORMAL [None]
  - CONSTIPATION [None]
  - DEAFNESS [None]
  - DEBRIDEMENT [None]
  - DECREASED INTEREST [None]
  - DEFORMITY [None]
  - DEHYDRATION [None]
  - DEPRESSION [None]
  - DERMATITIS [None]
  - DIPLOPIA [None]
  - DYSPNOEA [None]
  - EAR TUBE INSERTION [None]
  - EATING DISORDER [None]
  - ECZEMA [None]
  - ELECTROCARDIOGRAM ABNORMAL [None]
  - EMOTIONAL DISTRESS [None]
  - ENEMA ADMINISTRATION [None]
  - EYE SWELLING [None]
  - FAECALOMA [None]
  - FATIGUE [None]
  - FULL BLOOD COUNT ABNORMAL [None]
  - GAIT DISTURBANCE [None]
  - GENERAL PHYSICAL HEALTH DETERIORATION [None]
  - GINGIVAL ERYTHEMA [None]
  - GINGIVAL PAIN [None]
  - GINGIVAL SWELLING [None]
  - HEADACHE [None]
  - IMPAIRED HEALING [None]
  - INCONTINENCE [None]
  - INFECTION [None]
  - LETHARGY [None]
  - LIFE EXPECTANCY SHORTENED [None]
  - MALIGNANT NEOPLASM PROGRESSION [None]
  - MALNUTRITION [None]
  - MASS [None]
  - MEMORY IMPAIRMENT [None]
  - METASTASES TO BONE [None]
  - MYALGIA [None]
  - NECK PAIN [None]
  - NERVOUSNESS [None]
  - NUCLEAR MAGNETIC RESONANCE IMAGING [None]
  - OEDEMA MOUTH [None]
  - OPEN WOUND [None]
  - ORAL PAIN [None]
  - OSTEOARTHRITIS [None]
  - OSTEOMYELITIS [None]
  - OSTEONECROSIS [None]
  - PAIN [None]
  - PAIN IN EXTREMITY [None]
  - PAIN IN JAW [None]
  - PERIODONTITIS [None]
  - RADIATION INJURY [None]
  - SEQUESTRECTOMY [None]
  - SINUS BRADYCARDIA [None]
  - SLEEP DISORDER [None]
  - SPINAL DISORDER [None]
  - SWELLING [None]
  - SWELLING FACE [None]
  - TOOTH EXTRACTION [None]
  - VISION BLURRED [None]
  - WEIGHT DECREASED [None]
